FAERS Safety Report 5099161-3 (Version None)
Quarter: 2006Q3

REPORT INFORMATION
  Report Type: 
  Country: None (occurrence: None)
  Receive Date: 20060728
  Receipt Date: 20060120
  Transmission Date: 20061208
  Serious: No
  Sender: FDA-Public Use
  Company Number: COT_0266_2005

PATIENT
  Age: 42 Year
  Sex: Female
  Weight: 57.1532 kg

DRUGS (7)
  1. VENTAVIS [Suspect]
     Indication: PULMONARY HYPERTENSION
     Dosage: 2.5 MCG 6TO9X/DAY IH
     Dates: start: 20050822
  2. VENTAVIS [Suspect]
     Indication: PULMONARY HYPERTENSION
     Dosage: 5 MCG 6TO9X/DAY IH
  3. VENTAVIS [Suspect]
     Indication: PULMONARY HYPERTENSION
     Dosage: 2.5 MCG 5XD IH
  4. PRILOSEC [Concomitant]
  5. HYDROCHLOROTHIAZIDE [Concomitant]
  6. VERAPAMIL HC1 [Concomitant]
  7. FERROUS SULFATE TAB [Concomitant]

REACTIONS (5)
  - CHEST PAIN [None]
  - COUGH [None]
  - FLUSHING [None]
  - HEADACHE [None]
  - MENORRHAGIA [None]
